FAERS Safety Report 25348643 (Version 1)
Quarter: 2025Q2

REPORT INFORMATION
  Report Type: Spontaneous
  Country: BR (occurrence: BR)
  Receive Date: 20250522
  Receipt Date: 20250522
  Transmission Date: 20250717
  Serious: Yes (Other)
  Sender: NOVARTIS
  Company Number: BR-002147023-NVSC2025BR080206

PATIENT

DRUGS (1)
  1. IMATINIB [Suspect]
     Active Substance: IMATINIB
     Indication: Product used for unknown indication
     Route: 065

REACTIONS (10)
  - Craniocerebral injury [Unknown]
  - Seizure [Unknown]
  - Hypotension [Unknown]
  - Dehydration [Unknown]
  - Diarrhoea [Unknown]
  - Diarrhoea infectious [Unknown]
  - Fall [Unknown]
  - Neuralgia [Unknown]
  - Gliosis [Unknown]
  - Arteriosclerosis [Unknown]
